FAERS Safety Report 7491945-7 (Version None)
Quarter: 2011Q2

REPORT INFORMATION
  Report Type: 
  Country: None (occurrence: None)
  Receive Date: 20110511
  Receipt Date: 20110427
  Transmission Date: 20111010
  Serious: Yes (Other)
  Sender: FDA-Public Use
  Company Number: 2011SP019373

PATIENT
  Age: 60 Year
  Sex: Female

DRUGS (1)
  1. DULERA TABLET [Suspect]
     Indication: PRODUCT USED FOR UNKNOWN INDICATION
     Dosage: ;INH
     Route: 055

REACTIONS (4)
  - ORAL DISCOMFORT [None]
  - OEDEMA MOUTH [None]
  - BURNING SENSATION [None]
  - LIP SWELLING [None]
